FAERS Safety Report 4643185-4 (Version None)
Quarter: 2005Q2

REPORT INFORMATION
  Report Type: 
  Country: None (occurrence: None)
  Receive Date: 20050422
  Receipt Date: 20041116
  Transmission Date: 20051028
  Serious: Yes (Hospitalization, Disabling)
  Sender: FDA-Public Use
  Company Number: US-MERCK-0411USA02849

PATIENT
  Age: 53 Year
  Sex: Female
  Weight: 105 kg

DRUGS (13)
  1. VIOXX [Suspect]
     Indication: FIBROMYALGIA
     Route: 048
     Dates: start: 20010801, end: 20040501
  2. ULTRAM [Concomitant]
     Indication: FIBROMYALGIA
     Route: 048
     Dates: start: 20010101
  3. ELAVIL [Concomitant]
     Indication: INSOMNIA
     Route: 048
  4. ZOLOFT [Concomitant]
     Indication: DEPRESSION
     Route: 048
  5. NEXIUM [Concomitant]
     Indication: GASTROOESOPHAGEAL REFLUX DISEASE
     Route: 048
  6. ZELNORM [Concomitant]
     Indication: IRRITABLE BOWEL SYNDROME
     Route: 048
  7. COUMADIN [Concomitant]
     Indication: HYPERCOAGULATION
     Route: 065
  8. ACCUPRIL [Concomitant]
     Indication: HYPERTENSION
     Route: 048
  9. NEURONTIN [Concomitant]
     Indication: FIBROMYALGIA
     Route: 048
  10. DETROL [Concomitant]
     Indication: URGE INCONTINENCE
     Route: 048
  11. PREMPRO [Concomitant]
     Indication: MENOPAUSE
     Route: 048
  12. CALCIUM (UNSPECIFIED) [Concomitant]
     Route: 048
  13. CALCITRIOL [Concomitant]
     Indication: BLOOD CALCIUM DECREASED
     Route: 048

REACTIONS (1)
  - CEREBROVASCULAR ACCIDENT [None]
